FAERS Safety Report 9010111 (Version 5)
Quarter: 2014Q2

REPORT INFORMATION
  Report Type: Spontaneous
  Country: US (occurrence: US)
  Receive Date: 20130110
  Receipt Date: 20140409
  Transmission Date: 20141212
  Serious: Yes (Hospitalization)
  Sender: FDA-Public Use
  Company Number: US-009507513-1301USA003766

PATIENT
  Sex: Male

DRUGS (3)
  1. PROPECIA [Suspect]
     Indication: ANDROGENETIC ALOPECIA
     Dosage: 1 MG, QD
     Route: 048
     Dates: start: 20050615, end: 20110323
  2. FINASTERIDE [Suspect]
     Indication: ANDROGENETIC ALOPECIA
     Dosage: 5 MG, QD
     Route: 048
     Dates: start: 20070201, end: 20100302
  3. CLARINEX [Concomitant]
     Indication: HYPERSENSITIVITY
     Dosage: UNK
     Dates: start: 20081229, end: 20090527

REACTIONS (21)
  - Neck pain [Unknown]
  - Cognitive disorder [Not Recovered/Not Resolved]
  - Vision blurred [Unknown]
  - Amnesia [Unknown]
  - Dizziness [Unknown]
  - Sperm concentration decreased [Unknown]
  - Folate deficiency [Unknown]
  - Bacterial infection [Unknown]
  - Irritable bowel syndrome [Unknown]
  - Nausea [Unknown]
  - Infection [Unknown]
  - Inflammation [Unknown]
  - Blood triglycerides increased [Unknown]
  - Ear pain [Unknown]
  - Sexual dysfunction [Not Recovered/Not Resolved]
  - Erectile dysfunction [Unknown]
  - Disturbance in sexual arousal [Unknown]
  - Hair transplant [Unknown]
  - Haematuria [Unknown]
  - Pollakiuria [Unknown]
  - Dysuria [Unknown]
